FAERS Safety Report 18296787 (Version 4)
Quarter: 2020Q4

REPORT INFORMATION
  Report Type: Report from Study
  Country: US (occurrence: US)
  Receive Date: 20200922
  Receipt Date: 20201217
  Transmission Date: 20210113
  Serious: Yes (Other)
  Sender: FDA-Public Use
  Company Number: US-PFIZER INC-2020233460

PATIENT
  Age: 48 Year
  Sex: Female

DRUGS (2)
  1. LETROZOLE. [Concomitant]
     Active Substance: LETROZOLE
     Dosage: UNK
     Dates: start: 20200724
  2. IBRANCE [Suspect]
     Active Substance: PALBOCICLIB
     Indication: BREAST CANCER FEMALE
     Dosage: 125 MG, CYCLIC (DAILY FOR 21 DAYS AND OFF FOR 7 DAYS)
     Route: 048
     Dates: start: 20200612, end: 2020

REACTIONS (19)
  - Neuralgia [Not Recovered/Not Resolved]
  - Stomatitis [Recovering/Resolving]
  - Pruritus [Recovering/Resolving]
  - Neuropathy peripheral [Recovering/Resolving]
  - Oral mucosal blistering [Recovering/Resolving]
  - Myalgia [Recovering/Resolving]
  - Pain [Unknown]
  - Hypoaesthesia [Not Recovered/Not Resolved]
  - Condition aggravated [Not Recovered/Not Resolved]
  - Fatigue [Not Recovered/Not Resolved]
  - Muscular weakness [Unknown]
  - Dry skin [Recovering/Resolving]
  - Peripheral swelling [Recovering/Resolving]
  - Nausea [Unknown]
  - Dizziness [Unknown]
  - Epistaxis [Unknown]
  - Rash [Not Recovered/Not Resolved]
  - Vertigo [Unknown]
  - Dry eye [Unknown]

NARRATIVE: CASE EVENT DATE: 2020
